FAERS Safety Report 24000523 (Version 1)
Quarter: 2024Q2

REPORT INFORMATION
  Report Type: Spontaneous
  Country: US (occurrence: None)
  Receive Date: 20240621
  Receipt Date: 20240621
  Transmission Date: 20240716
  Serious: Yes (Other)
  Sender: FDA-Public Use
  Company Number: None

PATIENT
  Age: 75 Year
  Sex: Female
  Weight: 72 kg

DRUGS (12)
  1. ASTEPRO [Suspect]
     Active Substance: AZELASTINE HYDROCHLORIDE
     Indication: Hypersensitivity
     Dosage: OTHER STRENGTH : 2 SPRAYS;?OTHER QUANTITY : 2 SPRAY(S);?OTHER ROUTE : SPRAYED IN THE NOSE;?
     Route: 050
     Dates: start: 20240520, end: 20240621
  2. LISINOPRIL [Concomitant]
     Active Substance: LISINOPRIL
  3. RESTASIS [Concomitant]
     Active Substance: CYCLOSPORINE
  4. OMEPRAZOLE [Concomitant]
     Active Substance: OMEPRAZOLE
  5. HYDROCLORIZINE [Concomitant]
  6. CALCIUM [Concomitant]
     Active Substance: CALCIUM
  7. FISH OIL [Concomitant]
     Active Substance: FISH OIL
  8. CLARITIN [Concomitant]
     Active Substance: LORATADINE
  9. VITAMIN D3 [Concomitant]
     Active Substance: CHOLECALCIFEROL
  10. GLUCOSAMINE+ CHONDROITIN [Concomitant]
  11. ACETAMINOPHEN [Concomitant]
     Active Substance: ACETAMINOPHEN
  12. IBROFEN [Concomitant]

REACTIONS (3)
  - Epistaxis [None]
  - Aphonia [None]
  - Therapy interrupted [None]

NARRATIVE: CASE EVENT DATE: 20240620
